FAERS Safety Report 6840393-9 (Version None)
Quarter: 2010Q3

REPORT INFORMATION
  Report Type: 
  Country: None (occurrence: None)
  Receive Date: 20100714
  Receipt Date: 20100709
  Transmission Date: 20110219
  Serious: Yes (Hospitalization, Disabling, Other)
  Sender: FDA-Public Use
  Company Number: FR-BRISTOL-MYERS SQUIBB COMPANY-15187172

PATIENT
  Age: 86 Year
  Sex: Female

DRUGS (5)
  1. COUMADIN [Suspect]
     Indication: ATRIAL FIBRILLATION
     Route: 048
     Dates: end: 20100524
  2. SIMVASTATIN [Concomitant]
  3. HEMIGOXINE NATIVELLE [Concomitant]
  4. VASTAREL [Concomitant]
  5. PERINDOPRIL ERBUMINE [Concomitant]

REACTIONS (3)
  - BLOOD PRESSURE INCREASED [None]
  - FALL [None]
  - SUBDURAL HAEMATOMA [None]
